FAERS Safety Report 8603239-4 (Version None)
Quarter: 2012Q3

REPORT INFORMATION
  Report Type: 
  Country: None (occurrence: None)
  Receive Date: 20120817
  Receipt Date: 20120808
  Transmission Date: 20120928
  Serious: Yes (Death, Other)
  Sender: FDA-Public Use
  Company Number: US-ABBOTT-12P-163-0949252-00

PATIENT
  Sex: Female
  Weight: 90.8 kg

DRUGS (11)
  1. AZITHROMYCIN [Concomitant]
     Indication: PRODUCT USED FOR UNKNOWN INDICATION
     Dates: start: 20120313, end: 20120622
  2. TYLENOL WITH CODEIN #3 [Concomitant]
     Indication: PAIN
     Dosage: 300-30 MG TAB
     Route: 048
     Dates: start: 20120101, end: 20120502
  3. HUMIRA [Suspect]
     Route: 058
     Dates: start: 20101125, end: 20120313
  4. FENOFIBRATE [Concomitant]
     Indication: HYPERLIPIDAEMIA
     Dates: start: 20000101, end: 20120101
  5. ATARAX [Concomitant]
     Indication: PSORIASIS
     Dates: start: 20111214, end: 20120502
  6. HUMIRA [Suspect]
     Indication: PSORIASIS
     Route: 058
     Dates: start: 20101014, end: 20101014
  7. VERAPAMIL [Concomitant]
     Indication: MIGRAINE
     Dates: start: 20000101, end: 20120101
  8. PREDNISONE TAB [Concomitant]
     Indication: RESPIRATORY DISORDER
     Dosage: TAPER
     Dates: start: 20120313, end: 20120502
  9. LAMOTRIGINE [Concomitant]
     Indication: AFFECTIVE DISORDER
     Dates: start: 19900101, end: 20120101
  10. ABILIFY [Concomitant]
     Indication: AFFECTIVE DISORDER
     Dates: start: 19900101, end: 20120101
  11. FLUTICASONE PROPIONATE [Concomitant]
     Indication: RESPIRATORY DISORDER
     Dosage: 1 INHALATION 250-50 MCG/DOSE
     Dates: start: 20120313, end: 20120502

REACTIONS (1)
  - SARCOMA [None]
